FAERS Safety Report 18945991 (Version 1)
Quarter: 2021Q1

REPORT INFORMATION
  Report Type: Spontaneous
  Country: IT (occurrence: IT)
  Receive Date: 20210226
  Receipt Date: 20210226
  Transmission Date: 20210420
  Serious: Yes (Other)
  Sender: FDA-Public Use
  Company Number: IT-UNIQUE PHARMACEUTICAL LABORATORIES-20210200016

PATIENT
  Age: 54 Year
  Sex: Female

DRUGS (4)
  1. FLUCONAZOLE UNSPECIFIED [Suspect]
     Active Substance: FLUCONAZOLE
     Indication: FUNGAL INFECTION
     Route: 048
  2. TROSYD [Concomitant]
     Active Substance: TIOCONAZOLE
     Indication: FUNGAL INFECTION
  3. DIFLUCORTOLONE VALERATE;ISOCONAZOLE NITRATE [Concomitant]
     Active Substance: DIFLUCORTOLONE VALERATE\ISOCONAZOLE NITRATE
  4. TIOCONAZOLE. [Concomitant]
     Active Substance: TIOCONAZOLE
     Indication: FUNGAL INFECTION

REACTIONS (2)
  - Dermatitis contact [Unknown]
  - Therapeutic product cross-reactivity [Unknown]
